FAERS Safety Report 10543428 (Version 1)
Quarter: 2014Q4

REPORT INFORMATION
  Report Type: Spontaneous
  Country: BR (occurrence: BR)
  Receive Date: 20141027
  Receipt Date: 20141027
  Transmission Date: 20150529
  Serious: Yes (Death, Hospitalization, Other)
  Sender: FDA-Public Use
  Company Number: BR-TEVA-517633ISR

PATIENT
  Age: 50 Year
  Sex: Male

DRUGS (3)
  1. BLEOMYCIN [Suspect]
     Active Substance: BLEOMYCIN SULFATE
     Indication: TESTICULAR EMBRYONAL CARCINOMA
     Dosage: CUMULATIVE DOSE 300 IU TOTAL
     Route: 065
  2. CISPLATIN. [Concomitant]
     Active Substance: CISPLATIN
     Indication: TESTICULAR EMBRYONAL CARCINOMA
     Route: 065
  3. ETOPOSIDE. [Concomitant]
     Active Substance: ETOPOSIDE
     Indication: TESTICULAR EMBRYONAL CARCINOMA
     Route: 065

REACTIONS (5)
  - Interstitial lung disease [Unknown]
  - Septic shock [Fatal]
  - Pneumothorax [Unknown]
  - Subcutaneous emphysema [Unknown]
  - Pneumomediastinum [Unknown]
